FAERS Safety Report 8347647-8 (Version None)
Quarter: 2012Q2

REPORT INFORMATION
  Report Type: 
  Country: None (occurrence: None)
  Receive Date: 20120507
  Receipt Date: 20120426
  Transmission Date: 20120825
  Serious: Yes (Hospitalization)
  Sender: FDA-Public Use
  Company Number: 2012SP010343

PATIENT
  Age: 66 Year
  Sex: Male
  Weight: 62 kg

DRUGS (14)
  1. CELEBREX [Concomitant]
  2. MAGMITT [Concomitant]
  3. GASTROM [Concomitant]
  4. REBETOL [Suspect]
     Indication: HEPATITIS C
     Dosage: 8-MG;QD;PO, 400 MG;QD;PO, 200 MG,QD,PO
     Route: 048
     Dates: start: 20120201, end: 20120214
  5. REBETOL [Suspect]
     Indication: HEPATITIS C
     Dosage: 8-MG;QD;PO, 400 MG;QD;PO, 200 MG,QD,PO
     Route: 048
     Dates: start: 20120111, end: 20120131
  6. REBETOL [Suspect]
     Indication: HEPATITIS C
     Dosage: 8-MG;QD;PO, 400 MG;QD;PO, 200 MG,QD,PO
     Route: 048
     Dates: start: 20120215
  7. MIGLITOL [Concomitant]
  8. KERATINAMIN [Concomitant]
  9. PEG-INTRON [Suspect]
     Indication: HEPATITIS C
     Dosage: 1.5 MCG/KG;QW;SC
     Route: 058
     Dates: start: 20120111
  10. JUZEN-TAIHO-TO [Concomitant]
  11. OMEPRAZOLE [Concomitant]
  12. TELAVIC (TELAPREVIR) (INVESTIGATIONAL DRUG) (2250 MG) [Suspect]
     Indication: HEPATITIS C
     Dosage: 2250 MG;QD;PO, 1500 MG;QD;PO
     Route: 048
     Dates: start: 20120111
  13. TELAVIC (TELAPREVIR) (INVESTIGATIONAL DRUG) (2250 MG) [Suspect]
     Indication: HEPATITIS C
     Dosage: 2250 MG;QD;PO, 1500 MG;QD;PO
     Route: 048
     Dates: start: 20120215, end: 20120403
  14. LASIX [Concomitant]

REACTIONS (10)
  - HAEMOGLOBIN DECREASED [None]
  - XERODERMA [None]
  - DRY SKIN [None]
  - PLATELET COUNT DECREASED [None]
  - URINARY TRACT INFECTION [None]
  - PROSTATITIS [None]
  - HYPERURICAEMIA [None]
  - PRURITUS [None]
  - DECREASED APPETITE [None]
  - ANAEMIA [None]
